FAERS Safety Report 12735932 (Version 1)
Quarter: 2016Q3

REPORT INFORMATION
  Report Type: Spontaneous
  Country: US (occurrence: US)
  Receive Date: 20160913
  Receipt Date: 20160913
  Transmission Date: 20161109
  Serious: Yes (Life-Threatening, Hospitalization, Other)
  Sender: FDA-Public Use
  Company Number: US-RANBAXY-2014US-89875

PATIENT
  Age: 43 Year
  Sex: Female

DRUGS (1)
  1. LOPERAMIDE [Suspect]
     Active Substance: LOPERAMIDE
     Indication: DRUG WITHDRAWAL SYNDROME
     Dosage: 144 TABLETS OF LOPERAMIDE (2 MG DAILY)
     Route: 048

REACTIONS (2)
  - Drug abuse [Recovered/Resolved]
  - Torsade de pointes [Recovered/Resolved]
